FAERS Safety Report 8002257-7 (Version None)
Quarter: 2011Q4

REPORT INFORMATION
  Report Type: 
  Country: None (occurrence: None)
  Receive Date: 20111222
  Receipt Date: 20110125
  Transmission Date: 20120403
  Serious: No
  Sender: FDA-Public Use
  Company Number: US-GLAXOSMITHKLINE-A0909079A

PATIENT
  Age: 43 Year

DRUGS (1)
  1. NICORETTE [Suspect]
     Indication: EX-TOBACCO USER
     Dates: start: 20110119

REACTIONS (12)
  - ABDOMINAL DISCOMFORT [None]
  - THINKING ABNORMAL [None]
  - FEELING ABNORMAL [None]
  - DRUG ADMINISTRATION ERROR [None]
  - HEADACHE [None]
  - MOOD ALTERED [None]
  - SOMNOLENCE [None]
  - MENTAL DISORDER [None]
  - DRY MOUTH [None]
  - IRRITABILITY [None]
  - NAUSEA [None]
  - ABDOMINAL PAIN UPPER [None]
